FAERS Safety Report 15647863 (Version 2)
Quarter: 2019Q2

REPORT INFORMATION
  Report Type: Spontaneous
  Country: BR (occurrence: BR)
  Receive Date: 20181122
  Receipt Date: 20190513
  Transmission Date: 20190711
  Serious: Yes (Hospitalization)
  Sender: FDA-Public Use
  Company Number: BR-SUN PHARMACEUTICAL INDUSTRIES LTD-2018R1-191785

PATIENT
  Age: 67 Year
  Sex: Male

DRUGS (8)
  1. CALCIUM [Concomitant]
     Active Substance: CALCIUM
     Indication: VASCULITIS
  2. VITAMIN D [Concomitant]
     Active Substance: VITAMIN D NOS
     Indication: VASCULITIS
  3. METHOTREXATE. [Suspect]
     Active Substance: METHOTREXATE
     Indication: POLYARTHRITIS
     Dosage: UNK
     Route: 065
  4. CALCIUM [Concomitant]
     Active Substance: CALCIUM
     Indication: RAYNAUD^S PHENOMENON
     Dosage: UNKNOWN
     Route: 065
  5. CALCIUM [Concomitant]
     Active Substance: CALCIUM
     Indication: CALCINOSIS
  6. VITAMIN D [Concomitant]
     Active Substance: VITAMIN D NOS
     Indication: CALCINOSIS
  7. PREDNISONE. [Suspect]
     Active Substance: PREDNISONE
     Indication: POLYARTHRITIS
     Dosage: UNK
     Route: 065
  8. VITAMIN D [Concomitant]
     Active Substance: VITAMIN D NOS
     Indication: RAYNAUD^S PHENOMENON
     Dosage: UNKNOWN
     Route: 065

REACTIONS (1)
  - Arthritis bacterial [Unknown]
